FAERS Safety Report 18171339 (Version 4)
Quarter: 2020Q4

REPORT INFORMATION
  Report Type: Spontaneous
  Country: US (occurrence: US)
  Receive Date: 20200819
  Receipt Date: 20201007
  Transmission Date: 20210113
  Serious: No
  Sender: FDA-Public Use
  Company Number: US-UNITED THERAPEUTICS-UNT-2020-012291

PATIENT
  Sex: Female
  Weight: 64.85 kg

DRUGS (6)
  1. IRON [Suspect]
     Active Substance: IRON
     Indication: ANAEMIA
     Dosage: UNK
     Route: 065
  2. REMODULIN [Suspect]
     Active Substance: TREPROSTINIL
     Indication: PULMONARY ARTERIAL HYPERTENSION
     Dosage: UNK UNK, CONTINUING
     Route: 058
     Dates: start: 20191127
  3. WARFARIN [Concomitant]
     Active Substance: WARFARIN
     Indication: PRODUCT USED FOR UNKNOWN INDICATION
     Dosage: UNK
     Route: 065
  4. REMODULIN [Suspect]
     Active Substance: TREPROSTINIL
     Dosage: 0.037 ?G/KG, CONTINUING
     Route: 058
  5. IMODIUM [Suspect]
     Active Substance: LOPERAMIDE HYDROCHLORIDE
     Indication: DIARRHOEA
     Dosage: UNK
     Route: 065
  6. REMODULIN [Suspect]
     Active Substance: TREPROSTINIL
     Dosage: UNK, CONTINUING, AT INFUSION RATE OF 0.038ML PER HR
     Route: 058
     Dates: start: 2020

REACTIONS (8)
  - Malaise [Unknown]
  - Gastrointestinal disorder [Unknown]
  - Constipation [Unknown]
  - Anaemia [Unknown]
  - Diarrhoea [Unknown]
  - Syncope [Unknown]
  - Device malfunction [Unknown]
  - Off label use of device [Unknown]

NARRATIVE: CASE EVENT DATE: 2020
